FAERS Safety Report 8263100-4 (Version None)
Quarter: 2012Q2

REPORT INFORMATION
  Report Type: 
  Country: None (occurrence: None)
  Receive Date: 20120405
  Receipt Date: 20120329
  Transmission Date: 20120825
  Serious: Yes (Hospitalization)
  Sender: FDA-Public Use
  Company Number: JP-PFIZER INC-2012080115

PATIENT
  Age: 10 Year
  Sex: Female
  Weight: 23.8 kg

DRUGS (8)
  1. BACTRIM [Concomitant]
     Indication: PROPHYLAXIS
     Dosage: UNK
     Route: 048
  2. NEUTROGIN [Concomitant]
     Indication: ADVERSE EVENT
     Dosage: 100 UG, 1X/DAY
     Dates: start: 20111107, end: 20111109
  3. TEMSIROLIMUS [Suspect]
     Indication: SYNOVIAL SARCOMA
     Dosage: 25 MG, UNK
     Route: 042
     Dates: start: 20111101, end: 20111101
  4. VINORELBINE [Suspect]
     Indication: SYNOVIAL SARCOMA
     Dosage: 23 MG, 1X/DAY
     Route: 042
  5. ATARAX [Concomitant]
     Dosage: 20 MG, 1X/DAY
     Route: 042
  6. TOPOTECAN [Concomitant]
     Indication: SYNOVIAL SARCOMA
     Dosage: 47 MG, 1X/DAY
     Route: 042
     Dates: start: 20111122, end: 20111126
  7. TEMOZOLOMIDE [Suspect]
     Indication: SYNOVIAL SARCOMA
     Dosage: 230 MG, 1X/DAY
     Route: 042
  8. MEROPENEM [Concomitant]
     Indication: ADVERSE EVENT
     Dosage: 0.5 G, 3X/DAY
     Route: 042
     Dates: start: 20111105, end: 20111110

REACTIONS (1)
  - BONE MARROW FAILURE [None]
